FAERS Safety Report 12435486 (Version 3)
Quarter: 2018Q2

REPORT INFORMATION
  Report Type: Spontaneous
  Country: US (occurrence: US)
  Receive Date: 20160603
  Receipt Date: 20180608
  Transmission Date: 20180711
  Serious: No
  Sender: FDA-Public Use
  Company Number: US-ROCHE-1677827

PATIENT
  Sex: Female

DRUGS (3)
  1. ACTEMRA [Suspect]
     Active Substance: TOCILIZUMAB
     Indication: RHEUMATOID ARTHRITIS
     Dosage: THERAPY RECEIVED DATE: 22/MAR/2016 (162MG/0.9ML), 14/OCT/2015
     Route: 058
     Dates: start: 20120322
  2. METHOTREXATE. [Concomitant]
     Active Substance: METHOTREXATE
  3. ACTEMRA [Suspect]
     Active Substance: TOCILIZUMAB
     Route: 058
     Dates: start: 20151021

REACTIONS (18)
  - Pain [Unknown]
  - Restlessness [Unknown]
  - Joint stiffness [Unknown]
  - Visual impairment [Unknown]
  - Skin ulcer [Unknown]
  - Restless legs syndrome [Unknown]
  - Arthralgia [Unknown]
  - Nausea [Unknown]
  - Rash [Unknown]
  - Dizziness [Unknown]
  - Swelling face [Unknown]
  - Injection site pain [Unknown]
  - Flushing [Unknown]
  - Limb discomfort [Unknown]
  - Headache [Unknown]
  - Oropharyngeal pain [Unknown]
  - Fatigue [Unknown]
  - Fine motor skill dysfunction [Unknown]
